FAERS Safety Report 7154485-0 (Version None)
Quarter: 2010Q4

REPORT INFORMATION
  Report Type: 
  Country: None (occurrence: None)
  Receive Date: 20101213
  Receipt Date: 20101207
  Transmission Date: 20110411
  Serious: Yes (Hospitalization)
  Sender: FDA-Public Use
  Company Number: NL-BRISTOL-MYERS SQUIBB COMPANY-15429343

PATIENT
  Age: 66 Year
  Sex: Female

DRUGS (5)
  1. CETUXIMAB [Suspect]
     Indication: NON-SMALL CELL LUNG CANCER
     Dosage: MOST RECENT INFUSION ON 09NOV2010.INITIAL DOSE 400MG/M2
     Route: 042
     Dates: start: 20101005
  2. CISPLATIN [Suspect]
     Indication: NON-SMALL CELL LUNG CANCER
     Dosage: MOST RECENT INFUSION ON 02NOV2010
     Route: 042
     Dates: start: 20101012
  3. CARBOPLATIN [Suspect]
     Indication: NON-SMALL CELL LUNG CANCER
     Dosage: 1DF=AUC5.MOST RECENT INFUSION ON 20SEP2010
     Route: 042
     Dates: start: 20100920, end: 20100920
  4. GEMCITABINE [Suspect]
     Indication: NON-SMALL CELL LUNG CANCER
     Route: 042
     Dates: start: 20100920, end: 20100927
  5. VINORELBINE [Suspect]
     Indication: NON-SMALL CELL LUNG CANCER
     Dosage: MOST RECENT INFUSION ON 09NOV2010
     Route: 042
     Dates: start: 20101012

REACTIONS (1)
  - OESOPHAGITIS [None]
